FAERS Safety Report 25101966 (Version 1)
Quarter: 2025Q1

REPORT INFORMATION
  Report Type: Spontaneous
  Country: CN (occurrence: CN)
  Receive Date: 20250320
  Receipt Date: 20250320
  Transmission Date: 20250408
  Serious: Yes (Death, Other)
  Sender: NOVARTIS
  Company Number: CN-002147023-NVSC2025CN047043

PATIENT
  Age: 52 Year
  Sex: Female

DRUGS (3)
  1. LETROZOLE [Suspect]
     Active Substance: LETROZOLE
     Indication: HER2 positive breast cancer
     Dosage: 0.25 MG, QD
     Route: 048
  2. TRASTUZUMAB [Suspect]
     Active Substance: TRASTUZUMAB
     Indication: HER2 positive breast cancer
     Route: 065
  3. PERTUZUMAB [Suspect]
     Active Substance: PERTUZUMAB
     Indication: HER2 positive breast cancer
     Route: 065

REACTIONS (7)
  - HER2 positive breast cancer [Fatal]
  - Malignant neoplasm progression [Fatal]
  - Metastases to liver [Fatal]
  - Metastases to central nervous system [Fatal]
  - Metastases to bone [Fatal]
  - Metastases to lung [Fatal]
  - Atelectasis [Fatal]
